FAERS Safety Report 11880040 (Version 3)
Quarter: 2016Q1

REPORT INFORMATION
  Report Type: Spontaneous
  Country: US (occurrence: US)
  Receive Date: 20151230
  Receipt Date: 20160315
  Transmission Date: 20160526
  Serious: Yes (Hospitalization)
  Sender: FDA-Public Use
  Company Number: US-CELGENE-USA-2015124146

PATIENT
  Sex: Male

DRUGS (4)
  1. THALOMID [Suspect]
     Active Substance: THALIDOMIDE
     Route: 048
     Dates: start: 20150409, end: 20151130
  2. THALOMID [Suspect]
     Active Substance: THALIDOMIDE
     Indication: GASTROINTESTINAL HAEMORRHAGE
     Route: 048
     Dates: start: 201503
  3. BLOOD TRANSFUSION [Concomitant]
     Active Substance: WHOLE BLOOD
     Indication: ARTERIOVENOUS MALFORMATION
     Route: 041
     Dates: start: 20160109, end: 20160109
  4. BLOOD TRANSFUSION [Concomitant]
     Active Substance: WHOLE BLOOD
     Indication: HAEMORRHAGE
     Route: 041
     Dates: start: 20160121, end: 20160121

REACTIONS (3)
  - Fatigue [Recovering/Resolving]
  - Pain in extremity [Recovering/Resolving]
  - Decreased appetite [Recovering/Resolving]
